FAERS Safety Report 5447351-X (Version None)
Quarter: 2007Q3

REPORT INFORMATION
  Report Type: 
  Country: None (occurrence: None)
  Receive Date: 20070910
  Receipt Date: 20070829
  Transmission Date: 20080115
  Serious: Yes (Disabling, Other)
  Sender: FDA-Public Use
  Company Number: HQWYE008412OCT06

PATIENT
  Sex: Male

DRUGS (1)
  1. PANTOPRAZOLE SODIUM [Suspect]
     Indication: GASTRIC ULCER
     Dosage: ^20 MG^ UNSPECIFIED FREQUENCY
     Route: 048
     Dates: start: 20040110, end: 20060609

REACTIONS (6)
  - ARTHRALGIA [None]
  - JOINT SWELLING [None]
  - MYALGIA [None]
  - NONSPECIFIC REACTION [None]
  - OEDEMA [None]
  - TENDON DISORDER [None]
